FAERS Safety Report 5424347-5 (Version None)
Quarter: 2007Q3

REPORT INFORMATION
  Report Type: 
  Country: None (occurrence: None)
  Receive Date: 20070822
  Receipt Date: 20070706
  Transmission Date: 20080115
  Serious: Yes (Hospitalization)
  Sender: FDA-Public Use
  Company Number: 6036597

PATIENT
  Age: 73 Year
  Sex: Male

DRUGS (7)
  1. DICLOFENAC (INJECTION) (DICLOFENAC) [Suspect]
     Indication: BACK PAIN
     Dosage: 75MG DAILY I.M. FOR 2 DAYS (75 MG, 1 IN 1 D) INTRAMUSCULAR
     Route: 030
  2. CERIVASTATIN (400 MICROGRAM) (CERIVASTATIN) [Suspect]
     Indication: HYPERCHOLESTEROLAEMIA
     Dosage: 0,4 MG (0,4 MG, 1 IN 1 D)
  3. ASPIRIN [Concomitant]
  4. LOSARTAN POTASSIUM [Concomitant]
  5. AMLODIPINE [Concomitant]
  6. PROPRANOLOL [Concomitant]
  7. ISOSORBIDE MONONITRATE [Concomitant]

REACTIONS (8)
  - BACK PAIN [None]
  - BLOOD POTASSIUM INCREASED [None]
  - BLOOD PRESSURE INCREASED [None]
  - CARDIAC FIBRILLATION [None]
  - DRUG INTERACTION [None]
  - MYOPATHY [None]
  - RENAL FAILURE ACUTE [None]
  - RHABDOMYOLYSIS [None]
